FAERS Safety Report 25823228 (Version 1)
Quarter: 2025Q3

REPORT INFORMATION
  Report Type: Spontaneous
  Country: US (occurrence: US)
  Receive Date: 20250919
  Receipt Date: 20250919
  Transmission Date: 20251021
  Serious: No
  Sender: VIVUS
  Company Number: US-VIVUS LLC-2025V1000055

PATIENT

DRUGS (4)
  1. QSYMIA [Suspect]
     Active Substance: PHENTERMINE HYDROCHLORIDE\TOPIRAMATE
     Indication: Weight decreased
     Route: 048
     Dates: start: 20250106, end: 202501
  2. QSYMIA [Suspect]
     Active Substance: PHENTERMINE HYDROCHLORIDE\TOPIRAMATE
     Indication: Weight decreased
     Route: 048
     Dates: start: 20241223, end: 20250105
  3. NP THYROID [Concomitant]
     Active Substance: LEVOTHYROXINE\LIOTHYRONINE
     Indication: Thyroid disorder
     Route: 065
  4. CITALOPRAM [Concomitant]
     Active Substance: CITALOPRAM
     Indication: Anxiety
     Route: 065

REACTIONS (1)
  - Rash pruritic [Recovering/Resolving]

NARRATIVE: CASE EVENT DATE: 20250107
